FAERS Safety Report 21706221 (Version 1)
Quarter: 2022Q4

REPORT INFORMATION
  Report Type: Spontaneous
  Country: US (occurrence: None)
  Receive Date: 20221209
  Receipt Date: 20221209
  Transmission Date: 20230112
  Serious: Yes (Other)
  Sender: FDA-Public Use
  Company Number: 2022A397758

PATIENT
  Age: 79 Year
  Sex: Female

DRUGS (3)
  1. SYMBICORT [Suspect]
     Active Substance: BUDESONIDE\FORMOTEROL FUMARATE DIHYDRATE
     Route: 055
     Dates: end: 20221129
  2. BUDESONIDE\FORMOTEROL\GLYCOPYRRONIUM [Suspect]
     Active Substance: BUDESONIDE\FORMOTEROL\GLYCOPYRRONIUM
     Indication: Lung disorder
     Dosage: 160/9/4.8 MCG, TWO INHALATIONS, TWICE DAILY
     Route: 055
     Dates: start: 20221014
  3. ELIQUIS [Concomitant]
     Active Substance: APIXABAN

REACTIONS (7)
  - Pneumonia [Not Recovered/Not Resolved]
  - Device use issue [Unknown]
  - Incorrect dose administered by device [Not Recovered/Not Resolved]
  - Medication error [Recovered/Resolved]
  - Device leakage [Unknown]
  - Device issue [Unknown]
  - Device difficult to use [Unknown]

NARRATIVE: CASE EVENT DATE: 20220101
